FAERS Safety Report 9409225 (Version 1)
Quarter: 2013Q2

REPORT INFORMATION
  Report Type: Spontaneous
  Country: CA (occurrence: None)
  Receive Date: 20130429
  Receipt Date: 20130429
  Transmission Date: 20140414
  Serious: Yes (Hospitalization)
  Sender: FDA-Public Use
  Company Number: 2013CA0136

PATIENT
  Age: 48 Year
  Sex: Female

DRUGS (1)
  1. KINERET [Suspect]
     Indication: JUVENILE IDIOPATHIC ARTHRITIS
     Route: 058
     Dates: start: 20130220

REACTIONS (3)
  - Liver disorder [None]
  - Yellow skin [None]
  - Hepatic enzyme increased [None]
